FAERS Safety Report 23693382 (Version 2)
Quarter: 2024Q2

REPORT INFORMATION
  Report Type: Spontaneous
  Country: US (occurrence: US)
  Receive Date: 20240401
  Receipt Date: 20240412
  Transmission Date: 20240715
  Serious: No
  Sender: FDA-Public Use
  Company Number: US-PFIZER INC-PV202400041978

PATIENT
  Age: 64 Year
  Sex: Female
  Weight: 67.574 kg

DRUGS (6)
  1. BRAFTOVI [Suspect]
     Active Substance: ENCORAFENIB
     Indication: Malignant melanoma
     Dosage: ENCORAFENIB PO (PER ORAL)(450 QD)D1-28
     Route: 048
     Dates: start: 20231204
  2. BRAFTOVI [Suspect]
     Active Substance: ENCORAFENIB
     Dosage: TAKE 6 CAPS PO (PER ORAL) DAILY
     Route: 048
     Dates: start: 20240102
  3. BRAFTOVI [Suspect]
     Active Substance: ENCORAFENIB
     Dosage: TAKE 6 CAPS PO (PER ORAL) DAILY
     Route: 048
     Dates: start: 20240227
  4. MEKTOVI [Suspect]
     Active Substance: BINIMETINIB
     Indication: Malignant melanoma
     Dosage: BINIMETINIB PO (PER ORAL)(45 Q(EVERY)12H)D1-28
     Route: 048
     Dates: start: 20231204
  5. MEKTOVI [Suspect]
     Active Substance: BINIMETINIB
     Dosage: TAKE 3 TABS PO (PER ORAL) BID (TWICE A DAY)
     Route: 048
     Dates: start: 20240102
  6. MEKTOVI [Suspect]
     Active Substance: BINIMETINIB
     Dosage: TAKE 3 TABS PO (PER ORAL) BID (TWICE A DAY)
     Dates: start: 20240227

REACTIONS (4)
  - Nausea [Unknown]
  - Vomiting [Unknown]
  - Influenza [Recovering/Resolving]
  - Weight decreased [Unknown]

NARRATIVE: CASE EVENT DATE: 20240101
